FAERS Safety Report 10021617 (Version 4)
Quarter: 2014Q2

REPORT INFORMATION
  Report Type: Spontaneous
  Country: US (occurrence: US)
  Receive Date: 20140319
  Receipt Date: 20140429
  Transmission Date: 20141212
  Serious: Yes (Death, Hospitalization, Other)
  Sender: FDA-Public Use
  Company Number: US-BAXTER-2014BAX013990

PATIENT
  Sex: Male

DRUGS (6)
  1. DIANEAL LOW CALCIUM [Suspect]
     Indication: RENAL FAILURE CHRONIC
     Route: 033
     Dates: start: 201212, end: 20140330
  2. DIANEAL LOW CALCIUM [Suspect]
     Indication: RENAL FAILURE CHRONIC
     Route: 033
     Dates: start: 201212, end: 20140330
  3. DIANEAL PD2 [Suspect]
     Indication: RENAL FAILURE CHRONIC
     Route: 033
     Dates: start: 2012, end: 20140330
  4. DIANEAL PD2 [Suspect]
     Indication: PERITONEAL DIALYSIS
  5. DIANEAL PD2 [Suspect]
     Indication: RENAL FAILURE CHRONIC
     Route: 033
     Dates: start: 2012, end: 20140330
  6. DIANEAL PD2 [Suspect]
     Indication: PERITONEAL DIALYSIS

REACTIONS (6)
  - Oncologic complication [Fatal]
  - Pneumonia [Fatal]
  - Lung carcinoma cell type unspecified stage IV [Not Recovered/Not Resolved]
  - Chest pain [Recovered/Resolved]
  - Blood calcium decreased [Not Recovered/Not Resolved]
  - Condition aggravated [Recovering/Resolving]
